FAERS Safety Report 5805596-0 (Version None)
Quarter: 2008Q3

REPORT INFORMATION
  Report Type: 
  Country: None (occurrence: None)
  Receive Date: 20080708
  Receipt Date: 20080708
  Transmission Date: 20090109
  Serious: Yes (Other)
  Sender: FDA-Public Use
  Company Number: None

PATIENT
  Age: 32 Year
  Sex: Female

DRUGS (2)
  1. CHANTIX [Suspect]
     Indication: SMOKING CESSATION THERAPY
     Dosage: 0.5MG QDAY PO
     Route: 048
     Dates: start: 20080527, end: 20080529
  2. CONCERTA [Concomitant]

REACTIONS (3)
  - AGGRESSION [None]
  - AGITATION [None]
  - HEADACHE [None]
